FAERS Safety Report 9449333 (Version 1)
Quarter: 2013Q3

REPORT INFORMATION
  Report Type: Spontaneous
  Country: US (occurrence: US)
  Receive Date: 20130808
  Receipt Date: 20130808
  Transmission Date: 20140515
  Serious: Yes (Other)
  Sender: FDA-Public Use
  Company Number: US-TEVA-423728USA

PATIENT
  Sex: Female

DRUGS (1)
  1. QVAR [Suspect]

REACTIONS (2)
  - Non-small cell lung cancer [Unknown]
  - Chronic obstructive pulmonary disease [Unknown]
